FAERS Safety Report 16955105 (Version 1)
Quarter: 2019Q4

REPORT INFORMATION
  Report Type: Spontaneous
  Country: ES (occurrence: ES)
  Receive Date: 20191024
  Receipt Date: 20191024
  Transmission Date: 20200122
  Serious: Yes (Death)
  Sender: FDA-Public Use
  Company Number: ES-TEVA-2019-ES-1125991

PATIENT
  Age: 86 Year
  Sex: Female
  Weight: 90 kg

DRUGS (2)
  1. LINEZOLID TEVA PHARMA 600 MG COMPRIMIDOS RECUBIERTOS CON PELICULA EFG [Suspect]
     Active Substance: LINEZOLID
     Indication: POSTOPERATIVE WOUND INFECTION
     Dosage: 1200 MG PER 1 TOTAL; 10 TABLETS (TRANSPARENT BLISTER PVDC / PVC / ALUMINUM)
     Route: 048
     Dates: start: 20190828
  2. INVANZ [Suspect]
     Active Substance: ERTAPENEM SODIUM
     Indication: POSTOPERATIVE WOUND INFECTION
     Dosage: 1 GRAM PER 1 TOTAL; 1 VIAL
     Route: 042
     Dates: start: 20190828, end: 20190828

REACTIONS (1)
  - Multiple organ dysfunction syndrome [Fatal]

NARRATIVE: CASE EVENT DATE: 20190828
